FAERS Safety Report 13770108 (Version 2)
Quarter: 2017Q3

REPORT INFORMATION
  Report Type: Report from Study
  Country: US (occurrence: US)
  Receive Date: 20170719
  Receipt Date: 20170905
  Transmission Date: 20171127
  Serious: No
  Sender: FDA-Public Use
  Company Number: US-009507513-1707USA006616

PATIENT
  Age: 69 Year
  Sex: Female

DRUGS (1)
  1. PEPCID RPD [Suspect]
     Active Substance: FAMOTIDINE
     Route: 048

REACTIONS (4)
  - Vision blurred [Unknown]
  - Nausea [Unknown]
  - Gastrooesophageal reflux disease [Unknown]
  - Agitation [Unknown]
